FAERS Safety Report 4809953-0 (Version None)
Quarter: 2005Q4

REPORT INFORMATION
  Report Type: 
  Country: None (occurrence: None)
  Receive Date: 20051024
  Receipt Date: 20051011
  Transmission Date: 20060501
  Serious: Yes (Death, Hospitalization)
  Sender: FDA-Public Use
  Company Number: 205491

PATIENT
  Age: 73 Year
  Sex: Female
  Weight: 68.0396 kg

DRUGS (2)
  1. AVONEX [Suspect]
     Indication: MULTIPLE SCLEROSIS
     Dosage: 30 UG;QW;IM    :  30 UG;Q5D IM
     Route: 030
     Dates: start: 19960101, end: 20010101
  2. AVONEX [Suspect]
     Indication: MULTIPLE SCLEROSIS
     Dosage: 30 UG;QW;IM    :  30 UG;Q5D IM
     Route: 030
     Dates: start: 20010101, end: 20040901

REACTIONS (3)
  - METASTASES TO LUNG [None]
  - PANCREATIC CARCINOMA [None]
  - RENAL MASS [None]
